FAERS Safety Report 6628344-3 (Version None)
Quarter: 2010Q1

REPORT INFORMATION
  Report Type: 
  Country: None (occurrence: None)
  Receive Date: 20100311
  Receipt Date: 20100304
  Transmission Date: 20100710
  Serious: Yes (Hospitalization)
  Sender: FDA-Public Use
  Company Number: US-CEPHALON-2010000260

PATIENT
  Sex: Female
  Weight: 207 kg

DRUGS (2)
  1. NUVIGIL [Suspect]
     Indication: SCHIZOPHRENIA
     Route: 048
     Dates: start: 20090924
  2. OLANZAPINE [Concomitant]
     Indication: SCHIZOPHRENIA
     Route: 048
     Dates: start: 20090805

REACTIONS (1)
  - SOMATOFORM DISORDER [None]
